FAERS Safety Report 7850438-5 (Version None)
Quarter: 2011Q4

REPORT INFORMATION
  Report Type: 
  Country: None (occurrence: None)
  Receive Date: 20111024
  Receipt Date: 20111008
  Transmission Date: 20120403
  Serious: Yes (Other)
  Sender: FDA-Public Use
  Company Number: 2011AP002359

PATIENT
  Age: 66 Year
  Sex: Female

DRUGS (3)
  1. TRAMADOL HYDROCHLORIDE [Suspect]
     Indication: BACK PAIN
     Dosage: ;PRN;
  2. SPIRONOLACTONE [Suspect]
     Indication: ALCOHOLIC LIVER DISEASE
     Dosage: 25 MG; QD;
  3. ALCOHOL [Suspect]
     Indication: BACK PAIN

REACTIONS (5)
  - LOSS OF CONSCIOUSNESS [None]
  - DIZZINESS [None]
  - POLLAKIURIA [None]
  - DRUG INTERACTION [None]
  - TREATMENT NONCOMPLIANCE [None]
